FAERS Safety Report 23241020 (Version 1)
Quarter: 2023Q4

REPORT INFORMATION
  Report Type: Spontaneous
  Country: US (occurrence: None)
  Receive Date: 20231128
  Receipt Date: 20231128
  Transmission Date: 20240109
  Serious: Yes (Hospitalization)
  Sender: FDA-Public Use
  Company Number: None

PATIENT
  Age: 78 Year
  Sex: Female

DRUGS (1)
  1. TEMOZOLOMIDE [Suspect]
     Active Substance: TEMOZOLOMIDE
     Indication: Bone cancer
     Dosage: OTHER FREQUENCY : DAILY 7 ON 7 OFF;?
     Route: 048
     Dates: start: 20230710

REACTIONS (1)
  - Transfusion [None]

NARRATIVE: CASE EVENT DATE: 20231023
